FAERS Safety Report 4644743-3 (Version None)
Quarter: 2005Q2

REPORT INFORMATION
  Report Type: 
  Country: None (occurrence: None)
  Receive Date: 20050426
  Receipt Date: 20050414
  Transmission Date: 20051028
  Serious: Yes (Death, Other)
  Sender: FDA-Public Use
  Company Number: CH-BRISTOL-MYERS SQUIBB COMPANY-12935060

PATIENT
  Age: 71 Year
  Sex: Female

DRUGS (8)
  1. ARIPIPRAZOLE [Suspect]
     Indication: SCHIZOPHRENIA
     Dates: start: 20040618, end: 20041109
  2. ZOLPIDEM TARTRATE [Concomitant]
  3. ALPRAZOLAM [Concomitant]
  4. PANTOPRAZOLE SODIUM [Concomitant]
  5. CETIRIZINE HCL [Concomitant]
  6. DICLOFENAC SODIUM [Concomitant]
  7. KETOTIFEN [Concomitant]
  8. PROPRANOLOL [Concomitant]

REACTIONS (2)
  - DEATH [None]
  - GENERAL PHYSICAL HEALTH DETERIORATION [None]
